FAERS Safety Report 16832765 (Version 1)
Quarter: 2019Q3

REPORT INFORMATION
  Report Type: Spontaneous
  Country: AU (occurrence: AU)
  Receive Date: 20190920
  Receipt Date: 20190920
  Transmission Date: 20191005
  Serious: Yes (Death)
  Sender: FDA-Public Use
  Company Number: AU-BIOVITRUM-2019AU2923

PATIENT
  Age: 19 Year
  Sex: Female

DRUGS (8)
  1. KINERET [Suspect]
     Active Substance: ANAKINRA
  2. SULFASALAZINE. [Concomitant]
     Active Substance: SULFASALAZINE
  3. MICROGYNON [Concomitant]
     Active Substance: ETHINYL ESTRADIOL\LEVONORGESTREL ACETATE
  4. COSENTYX [Suspect]
     Active Substance: SECUKINUMAB
  5. STELARA [Suspect]
     Active Substance: USTEKINUMAB
  6. METHOTREXATE. [Suspect]
     Active Substance: METHOTREXATE
  7. CIMZIA [Suspect]
     Active Substance: CERTOLIZUMAB PEGOL
  8. COLCHICINE. [Suspect]
     Active Substance: COLCHICINE

REACTIONS (11)
  - Hyperparathyroidism secondary [Fatal]
  - Nausea [Fatal]
  - Vitamin D decreased [Fatal]
  - Barotrauma [Fatal]
  - Sacroiliitis [Fatal]
  - Vertigo [Fatal]
  - Diarrhoea [Fatal]
  - Axial spondyloarthritis [Fatal]
  - Treatment failure [Fatal]
  - Gamma-glutamyltransferase increased [Fatal]
  - Autoinflammatory disease [Fatal]
